FAERS Safety Report 23134422 (Version 1)
Quarter: 2023Q4

REPORT INFORMATION
  Report Type: Spontaneous
  Country: US (occurrence: None)
  Receive Date: 20231031
  Receipt Date: 20231031
  Transmission Date: 20240110
  Serious: No
  Sender: FDA-Public Use
  Company Number: None

PATIENT
  Age: 65 Year
  Sex: Female

DRUGS (2)
  1. AMBRISENTAN [Suspect]
     Active Substance: AMBRISENTAN
     Indication: Pulmonary arterial hypertension
     Dosage: FREQUENCY : DAILY;?
     Route: 048
  2. IRON [Suspect]
     Active Substance: IRON

REACTIONS (8)
  - Asthenia [None]
  - Depression [None]
  - Anxiety [None]
  - Insomnia [None]
  - Disturbance in attention [None]
  - Fracture [None]
  - Dyspnoea [None]
  - Abnormal faeces [None]

NARRATIVE: CASE EVENT DATE: 20231031
